FAERS Safety Report 14867164 (Version 3)
Quarter: 2018Q2

REPORT INFORMATION
  Report Type: Spontaneous
  Country: US (occurrence: US)
  Receive Date: 20180508
  Receipt Date: 20180516
  Transmission Date: 20180711
  Serious: No
  Sender: FDA-Public Use
  Company Number: US-ALKERMES INC.-ALK-2018-001454

PATIENT
  Age: 38 Year
  Sex: Female

DRUGS (3)
  1. VIVITROL [Suspect]
     Active Substance: NALTREXONE
     Indication: DRUG DEPENDENCE
     Dosage: 380 MG, QMO
     Route: 030
     Dates: start: 20180305
  2. NALTREXONE [Concomitant]
     Active Substance: NALTREXONE
     Dosage: 25 MG, ONE TIME DOSE
     Route: 048
     Dates: start: 20180402, end: 20180402
  3. NALTREXONE [Concomitant]
     Active Substance: NALTREXONE
     Indication: PRODUCT USED FOR UNKNOWN INDICATION
     Dosage: 25 MG, ONE TIME DOSE
     Route: 048
     Dates: start: 20180305, end: 20180305

REACTIONS (6)
  - Dry mouth [Recovered/Resolved]
  - Drug abuse [Not Recovered/Not Resolved]
  - Fatigue [Recovered/Resolved]
  - Insomnia [Recovering/Resolving]
  - Nausea [Recovered/Resolved]
  - Withdrawal syndrome [Recovered/Resolved]

NARRATIVE: CASE EVENT DATE: 20180305
